FAERS Safety Report 13752398 (Version 2)
Quarter: 2017Q3

REPORT INFORMATION
  Report Type: Report from Study
  Country: US (occurrence: US)
  Receive Date: 20170713
  Receipt Date: 20170814
  Transmission Date: 20171127
  Serious: Yes (Other)
  Sender: FDA-Public Use
  Company Number: US-JAZZ-2017-US-006218

PATIENT
  Age: 81 Year
  Sex: Male

DRUGS (25)
  1. FOLIC ACID. [Concomitant]
     Active Substance: FOLIC ACID
  2. FUROSEMIDE. [Concomitant]
     Active Substance: FUROSEMIDE
  3. ASPIRIN 81 [Concomitant]
     Active Substance: ASPIRIN
  4. NTG [Concomitant]
     Active Substance: NITROGLYCERIN
  5. ZOCOR [Concomitant]
     Active Substance: SIMVASTATIN
  6. XYREM [Suspect]
     Active Substance: SODIUM OXYBATE
     Indication: CATAPLEXY
  7. AMOXICILLIN. [Concomitant]
     Active Substance: AMOXICILLIN
  8. DILTIAZEM. [Concomitant]
     Active Substance: DILTIAZEM
  9. PLAVIX [Concomitant]
     Active Substance: CLOPIDOGREL BISULFATE
  10. ZOLOFT [Concomitant]
     Active Substance: SERTRALINE HYDROCHLORIDE
  11. CHOLESTYRAMINE. [Suspect]
     Active Substance: CHOLESTYRAMINE
     Indication: PRODUCT USED FOR UNKNOWN INDICATION
  12. FINASTERIDE. [Concomitant]
     Active Substance: FINASTERIDE
  13. TAMSULOSIN HCL [Concomitant]
     Active Substance: TAMSULOSIN
  14. VESICARE [Concomitant]
     Active Substance: SOLIFENACIN SUCCINATE
  15. CHOLESTYRAMINE. [Suspect]
     Active Substance: CHOLESTYRAMINE
     Dosage: UNK
     Dates: start: 20170608
  16. VITAMIN B COMPLEX [Concomitant]
     Active Substance: CYANOCOBALAMIN\DEXPANTHENOL\NIACINAMIDE\PYRIDOXINE HYDROCHLORIDE\RIBOFLAVIN 5^-PHOSPHATE SODIUM\THIAMINE HYDROCHLORIDE\VITAMIN B COMPLEX
  17. DESONIDE. [Concomitant]
     Active Substance: DESONIDE
  18. ZANTAC [Concomitant]
     Active Substance: RANITIDINE HYDROCHLORIDE
  19. XYREM [Suspect]
     Active Substance: SODIUM OXYBATE
     Indication: NARCOLEPSY
     Dosage: 4.5 G, BID
     Route: 048
     Dates: start: 200210
  20. PROAIR HFA [Concomitant]
     Active Substance: ALBUTEROL SULFATE
  21. WARFARIN SODIUM. [Concomitant]
     Active Substance: WARFARIN SODIUM
  22. PRAVASTATIN SODIUM. [Concomitant]
     Active Substance: PRAVASTATIN SODIUM
  23. TEMAZEPAM. [Concomitant]
     Active Substance: TEMAZEPAM
  24. METOPROLOL SUCCINATE. [Concomitant]
     Active Substance: METOPROLOL SUCCINATE
  25. LISINOPRIL. [Concomitant]
     Active Substance: LISINOPRIL

REACTIONS (4)
  - Cataplexy [Recovering/Resolving]
  - Vomiting [Unknown]
  - Frequent bowel movements [Not Recovered/Not Resolved]
  - Nausea [Not Recovered/Not Resolved]

NARRATIVE: CASE EVENT DATE: 201705
